FAERS Safety Report 9124589 (Version 1)
Quarter: 2013Q1

REPORT INFORMATION
  Report Type: Spontaneous
  Country: US (occurrence: US)
  Receive Date: 20130117
  Receipt Date: 20130117
  Transmission Date: 20140127
  Serious: Yes (Other)
  Sender: FDA-Public Use
  Company Number: US-BAYER-2013-004189

PATIENT
  Age: 58 Year
  Sex: Male
  Weight: 90.7 kg

DRUGS (3)
  1. ALKA-SELTZER PLUS COLD FORMULA [Suspect]
     Indication: NASOPHARYNGITIS
     Dosage: 2 DF, QD
     Route: 048
     Dates: start: 20130107, end: 20130109
  2. LISINOPRIL [Concomitant]
  3. ZINC [Suspect]

REACTIONS (3)
  - Loss of consciousness [Recovered/Resolved]
  - Nausea [Recovered/Resolved]
  - Vomiting [Recovered/Resolved]
